FAERS Safety Report 13005920 (Version 1)
Quarter: 2016Q4

REPORT INFORMATION
  Report Type: Spontaneous
  Country: US (occurrence: US)
  Receive Date: 20161206
  Receipt Date: 20161206
  Transmission Date: 20170207
  Serious: Yes (Other)
  Sender: FDA-Public Use
  Company Number: None

PATIENT
  Age: 52 Year
  Weight: 56.25 kg

DRUGS (5)
  1. FETZIMA [Suspect]
     Active Substance: LEVOMILNACIPRAN HYDROCHLORIDE
     Indication: DEPRESSION
     Dosage: ?          QUANTITY:21 CAPSULE(S);?
     Dates: start: 20161204, end: 20161206
  2. TYLENOL [Concomitant]
     Active Substance: ACETAMINOPHEN
  3. FETZIMA [Suspect]
     Active Substance: LEVOMILNACIPRAN HYDROCHLORIDE
     Indication: ANXIETY
     Dosage: ?          QUANTITY:21 CAPSULE(S);?
     Dates: start: 20161204, end: 20161206
  4. CALCIUM MAGNESIUM [Concomitant]
     Active Substance: CALCIUM\MAGNESIUM
  5. ATIVAN [Concomitant]
     Active Substance: LORAZEPAM

REACTIONS (5)
  - Cough [None]
  - Rhinorrhoea [None]
  - Dysphonia [None]
  - Chest discomfort [None]
  - Asthenia [None]

NARRATIVE: CASE EVENT DATE: 20161206
